FAERS Safety Report 6545609-4 (Version None)
Quarter: 2010Q1

REPORT INFORMATION
  Report Type: 
  Country: None (occurrence: None)
  Receive Date: 20100119
  Receipt Date: 20100106
  Transmission Date: 20100710
  Serious: No
  Sender: FDA-Public Use
  Company Number: 2010010008

PATIENT
  Age: 63 Year
  Sex: Male

DRUGS (3)
  1. ONSOLIS [Suspect]
     Dosage: 3200 MCG (800 MCG,4 IN 1 D),BU
     Route: 002
  2. OXYCONTIN [Concomitant]
  3. OXYCODONE HCL [Concomitant]

REACTIONS (3)
  - DRUG INEFFECTIVE [None]
  - DRUG PRESCRIBING ERROR [None]
  - INTERCEPTED MEDICATION ERROR [None]
